FAERS Safety Report 4537400-5 (Version None)
Quarter: 2004Q4

REPORT INFORMATION
  Report Type: 
  Country: None (occurrence: None)
  Receive Date: 20041223
  Receipt Date: 20041209
  Transmission Date: 20050328
  Serious: Yes (Hospitalization)
  Sender: FDA-Public Use
  Company Number: SE-ABBOTT-04P-150-0283527-00

PATIENT
  Sex: Male

DRUGS (16)
  1. HUMIRA [Suspect]
     Indication: RHEUMATOID ARTHRITIS
     Route: 058
     Dates: start: 20030604, end: 20041019
  2. EPOETIN BETA [Suspect]
     Indication: RENAL DISORDER
     Dates: start: 20020307, end: 20041112
  3. FOLACIN [Concomitant]
     Indication: DRUG USE FOR UNKNOWN INDICATION
     Route: 048
  4. PARACETAMOL [Concomitant]
     Indication: DRUG USE FOR UNKNOWN INDICATION
     Route: 048
  5. BEVITOTAL COMP. [Concomitant]
     Indication: DRUG USE FOR UNKNOWN INDICATION
     Route: 048
  6. DISTALGESIC [Concomitant]
     Indication: DRUG USE FOR UNKNOWN INDICATION
     Route: 048
  7. CALCITRIOL [Concomitant]
     Indication: DRUG USE FOR UNKNOWN INDICATION
     Route: 048
  8. PREDNISOLONE [Concomitant]
     Indication: DRUG USE FOR UNKNOWN INDICATION
     Route: 048
  9. LAKTULOS ORAL SOLUTION [Concomitant]
     Indication: DRUG USE FOR UNKNOWN INDICATION
  10. CALCIUM CARBONATE [Concomitant]
     Indication: DRUG USE FOR UNKNOWN INDICATION
     Dosage: 250 MGCA**2+
  11. AMLODIPINE BESYLATE [Concomitant]
     Indication: DRUG USE FOR UNKNOWN INDICATION
  12. MADOPAR [Concomitant]
     Indication: DRUG USE FOR UNKNOWN INDICATION
  13. AMINESS [Concomitant]
     Indication: DRUG USE FOR UNKNOWN INDICATION
  14. TORSEMIDE [Concomitant]
     Indication: DRUG USE FOR UNKNOWN INDICATION
  15. UREA [Concomitant]
     Indication: DRUG USE FOR UNKNOWN INDICATION
     Dosage: CREAM
  16. OMEPRAZOLE MAGNESIUM [Concomitant]
     Indication: DRUG USE FOR UNKNOWN INDICATION
     Dosage: GASTRO-RESISTANT

REACTIONS (1)
  - APLASIA PURE RED CELL [None]
